FAERS Safety Report 7625946-2 (Version None)
Quarter: 2011Q3

REPORT INFORMATION
  Report Type: 
  Country: None (occurrence: None)
  Receive Date: 20110721
  Receipt Date: 20110721
  Transmission Date: 20111222
  Serious: Yes (Life-Threatening)
  Sender: FDA-Public Use
  Company Number: None

PATIENT
  Sex: Male
  Weight: 101.6 kg

DRUGS (1)
  1. EFFIENT [Suspect]
     Indication: CORONARY ARTERIAL STENT INSERTION
     Dates: start: 20110101, end: 20110714

REACTIONS (11)
  - HEADACHE [None]
  - BLOOD PRESSURE INCREASED [None]
  - DIZZINESS [None]
  - SYNCOPE [None]
  - UNRESPONSIVE TO STIMULI [None]
  - SUPERIOR SAGITTAL SINUS THROMBOSIS [None]
  - HEAD INJURY [None]
  - HEART RATE DECREASED [None]
  - HEARING IMPAIRED [None]
  - NAUSEA [None]
  - CEREBRAL HAEMORRHAGE [None]
